FAERS Safety Report 8259204-2 (Version None)
Quarter: 2012Q2

REPORT INFORMATION
  Report Type: 
  Country: None (occurrence: None)
  Receive Date: 20120404
  Receipt Date: 20120402
  Transmission Date: 20120825
  Serious: Yes (Hospitalization)
  Sender: FDA-Public Use
  Company Number: JP-PFIZER INC-2012054259

PATIENT
  Age: 16 Year
  Sex: Male
  Weight: 57 kg

DRUGS (5)
  1. GENOTROPIN [Suspect]
     Indication: HYPOPITUITARISM
     Dosage: 1.5 MG, 1X/DAY
     Route: 058
     Dates: start: 20111104, end: 20120302
  2. CORTRIL [Concomitant]
     Indication: ADRENAL INSUFFICIENCY
     Dosage: 10 MG, 1X/DAY
     Route: 048
     Dates: start: 20060317
  3. LEVOTHYROXINE SODIUM [Concomitant]
     Indication: HYPOTHYROIDISM
     Dosage: 75 UG, 1X/DAY
     Route: 048
     Dates: start: 20020823
  4. DESMOPRESSIN [Concomitant]
     Indication: DIABETES INSIPIDUS
     Dosage: 2.5 UG, 1X/DAY
     Route: 045
     Dates: start: 20000301
  5. DEPAKENE [Concomitant]
     Indication: EPILEPSY
     Dosage: 200 MG, 2X/DAY
     Route: 048
     Dates: start: 20000301

REACTIONS (2)
  - CRANIOPHARYNGIOMA [None]
  - NEOPLASM RECURRENCE [None]
